FAERS Safety Report 6737956-8 (Version None)
Quarter: 2010Q2

REPORT INFORMATION
  Report Type: 
  Country: None (occurrence: None)
  Receive Date: 20100524
  Receipt Date: 20100426
  Transmission Date: 20101027
  Serious: No
  Sender: FDA-Public Use
  Company Number: A0850453A

PATIENT
  Age: 58 Year
  Sex: Male
  Weight: 84.5 kg

DRUGS (1)
  1. ARZERRA [Suspect]
     Dosage: 2G UNKNOWN
     Route: 042
     Dates: start: 20100108

REACTIONS (2)
  - INCORRECT DRUG ADMINISTRATION DURATION [None]
  - PRODUCT QUALITY ISSUE [None]
